FAERS Safety Report 19058583 (Version 2)
Quarter: 2021Q2

REPORT INFORMATION
  Report Type: Report from Study
  Country: US (occurrence: US)
  Receive Date: 20210325
  Receipt Date: 20210407
  Transmission Date: 20210717
  Serious: Yes (Hospitalization)
  Sender: FDA-Public Use
  Company Number: US-JNJFOC-20210329669

PATIENT
  Age: 34 Year
  Sex: Female
  Weight: 173.2 kg

DRUGS (2)
  1. OPSUMIT [Suspect]
     Active Substance: MACITENTAN
     Indication: PULMONARY ARTERIAL HYPERTENSION
     Route: 048
  2. ADEMPAS [Concomitant]
     Active Substance: RIOCIGUAT

REACTIONS (8)
  - Tachycardia [Unknown]
  - Sleep apnoea syndrome [Not Recovered/Not Resolved]
  - Cerebrovascular accident [Unknown]
  - Dyspnoea [Unknown]
  - Hypertension [Unknown]
  - Fatigue [Unknown]
  - Back pain [Unknown]
  - Exercise tolerance decreased [Unknown]

NARRATIVE: CASE EVENT DATE: 20210314
